FAERS Safety Report 18178964 (Version 10)
Quarter: 2021Q1

REPORT INFORMATION
  Report Type: Spontaneous
  Country: US (occurrence: US)
  Receive Date: 20200820
  Receipt Date: 20210218
  Transmission Date: 20210419
  Serious: Yes (Hospitalization, Other)
  Sender: FDA-Public Use
  Company Number: US-PFIZER INC-2020321375

PATIENT
  Age: 74 Year
  Sex: Female

DRUGS (1)
  1. SUTENT [Suspect]
     Active Substance: SUNITINIB MALATE
     Indication: RENAL CANCER
     Dosage: 37.5 MG, CYCLIC (TAKE 1 CAPSULE BY MOUTH ONCE DAILY FOR 14 DAYS FOLLOWED BY 1 WEEK OF REST)
     Route: 048
     Dates: start: 202007

REACTIONS (21)
  - Blood glucose decreased [Unknown]
  - Joint stiffness [Unknown]
  - Skin lesion [Unknown]
  - Blood pressure decreased [Not Recovered/Not Resolved]
  - Rib fracture [Unknown]
  - Haemorrhage [Unknown]
  - Rash [Unknown]
  - Genital rash [Not Recovered/Not Resolved]
  - Feeding disorder [Unknown]
  - Bone pain [Unknown]
  - Pigmentation disorder [Unknown]
  - Gait disturbance [Unknown]
  - Walking aid user [Unknown]
  - Arthralgia [Unknown]
  - Joint swelling [Unknown]
  - Skin exfoliation [Unknown]
  - Dysgeusia [Unknown]
  - Condition aggravated [Unknown]
  - Genital odour [Not Recovered/Not Resolved]
  - Taste disorder [Unknown]
  - Pain [Not Recovered/Not Resolved]

NARRATIVE: CASE EVENT DATE: 2020
